FAERS Safety Report 8978401 (Version 1)
Quarter: 2012Q4

REPORT INFORMATION
  Report Type: 
  Country: IN (occurrence: IN)
  Receive Date: 20121221
  Receipt Date: 20121221
  Transmission Date: 20130627
  Serious: Yes (Death)
  Sender: FDA-Public Use
  Company Number: IN-PFIZER INC-2012319734

PATIENT
  Sex: Female

DRUGS (1)
  1. SUTENT [Suspect]
     Indication: GASTROINTESTINAL STROMAL TUMOR
     Dosage: 50 mg (frequency unspecified)
     Route: 048

REACTIONS (3)
  - Death [Fatal]
  - Disease progression [Unknown]
  - Gastrointestinal stromal tumour [Unknown]
